FAERS Safety Report 23561196 (Version 1)
Quarter: 2024Q1

REPORT INFORMATION
  Report Type: Spontaneous
  Country: AU (occurrence: AU)
  Receive Date: 20240224
  Receipt Date: 20240224
  Transmission Date: 20240410
  Serious: Yes (Hospitalization, Other)
  Sender: FDA-Public Use
  Company Number: AU-NOVITIUMPHARMA-2024AUNVP00163

PATIENT
  Age: 43 Year
  Sex: Female

DRUGS (13)
  1. HYDROXYCHLOROQUINE SULFATE [Suspect]
     Active Substance: HYDROXYCHLOROQUINE SULFATE
     Indication: Systemic lupus erythematosus
  2. HYDROXYCHLOROQUINE SULFATE [Suspect]
     Active Substance: HYDROXYCHLOROQUINE SULFATE
     Indication: Immunosuppression
  3. PREDNISONE [Suspect]
     Active Substance: PREDNISONE
     Indication: Immune-mediated myositis
     Route: 048
  4. PREDNISONE [Suspect]
     Active Substance: PREDNISONE
     Indication: Immune-mediated lung disease
  5. METHYLPREDNISOLONE [Concomitant]
     Active Substance: METHYLPREDNISOLONE
     Indication: Immune-mediated myositis
     Route: 042
  6. METHYLPREDNISOLONE [Concomitant]
     Active Substance: METHYLPREDNISOLONE
     Indication: Immune-mediated lung disease
  7. CYCLOPHOSPHAMIDE [Concomitant]
     Active Substance: CYCLOPHOSPHAMIDE
     Indication: Immune-mediated myositis
     Route: 042
  8. CYCLOPHOSPHAMIDE [Concomitant]
     Active Substance: CYCLOPHOSPHAMIDE
     Indication: Immune-mediated lung disease
  9. WARFARIN [Concomitant]
     Active Substance: WARFARIN
     Indication: Anticoagulant therapy
  10. CEFTRIAXONE [Concomitant]
     Active Substance: CEFTRIAXONE\CEFTRIAXONE SODIUM
     Indication: Antibiotic therapy
  11. DOXYCYCLINE [Concomitant]
     Active Substance: DOXYCYCLINE
     Indication: Antibiotic therapy
  12. RITUXIMAB [Concomitant]
     Active Substance: RITUXIMAB
     Indication: Immune-mediated lung disease
  13. CYCLOSPORINE [Concomitant]
     Active Substance: CYCLOSPORINE
     Indication: Systemic lupus erythematosus

REACTIONS (4)
  - Haemophagocytic lymphohistiocytosis [Recovering/Resolving]
  - Oesophageal candidiasis [Recovering/Resolving]
  - Immune-mediated myositis [Recovering/Resolving]
  - Immune-mediated lung disease [Recovering/Resolving]
